FAERS Safety Report 5058353-X (Version None)
Quarter: 2006Q2

REPORT INFORMATION
  Report Type: 
  Country: None (occurrence: None)
  Receive Date: 20060628
  Receipt Date: 20060324
  Transmission Date: 20061013
  Serious: Yes (Hospitalization)
  Sender: FDA-Public Use
  Company Number: PHEH2006US04041

PATIENT
  Age: 54 Year
  Sex: Female
  Weight: 67.1 kg

DRUGS (7)
  1. SIMULECT [Suspect]
     Indication: RENAL TRANSPLANT
     Dosage: 20 MG, ONCE/SINGLE, INTRAVENOUS
     Route: 042
     Dates: start: 20060131, end: 20060131
  2. SIMULECT [Suspect]
     Indication: RENAL TRANSPLANT
     Dosage: 20 MG, ONCE/SINGLE, INTRAVENOUS
     Route: 042
     Dates: start: 20060203, end: 20060203
  3. SIMULECT [Suspect]
  4. SIMULECT [Suspect]
  5. PROGRAF [Concomitant]
  6. CELLCEPT [Concomitant]
  7. PREDNISONE TAB [Concomitant]

REACTIONS (2)
  - BLOOD CREATININE INCREASED [None]
  - KIDNEY TRANSPLANT REJECTION [None]
